FAERS Safety Report 8444591 (Version 2)
Quarter: 2014Q4

REPORT INFORMATION
  Report Type: Spontaneous
  Country: CA (occurrence: CA)
  Receive Date: 20120307
  Receipt Date: 20141231
  Transmission Date: 20150529
  Serious: Yes (Other)
  Sender: FDA-Public Use
  Company Number: CA-COVIDIEN/TYCO HEALTHCARE/MALLINCKRODT-T201200805

PATIENT
  Age: 36 Year
  Sex: Female

DRUGS (1)
  1. OCTREOSCAN [Suspect]
     Active Substance: INDIUM IN-111 CHLORIDE\INDIUM IN-111 PENTETREOTIDE\PENTETREOTIDE
     Indication: PRODUCT USED FOR UNKNOWN INDICATION
     Dosage: 222 MBQ, UNK
     Route: 065
     Dates: start: 20100603, end: 20100603

REACTIONS (4)
  - Flushing [Unknown]
  - Nausea [Unknown]
  - Hyperhidrosis [Unknown]
  - Erythema [Unknown]

NARRATIVE: CASE EVENT DATE: 20100603
